FAERS Safety Report 4958046-0 (Version None)
Quarter: 2006Q1

REPORT INFORMATION
  Report Type: 
  Country: None (occurrence: None)
  Receive Date: 20060330
  Receipt Date: 20050531
  Transmission Date: 20060701
  Serious: Yes (Hospitalization)
  Sender: FDA-Public Use
  Company Number: US-MERCK-0506USA00425

PATIENT
  Age: 72 Year
  Sex: Male
  Weight: 77 kg

DRUGS (7)
  1. ZOCOR [Suspect]
     Route: 048
     Dates: start: 20040813, end: 20040901
  2. AMIODARONE [Suspect]
     Route: 065
     Dates: start: 20040710, end: 20040901
  3. METFORMIN [Concomitant]
     Route: 065
  4. VASOTEC RPD [Concomitant]
     Route: 065
  5. GLIMEPIRIDE [Concomitant]
     Route: 065
  6. HYDRODIURIL [Concomitant]
     Route: 065
  7. ASPIRIN [Concomitant]
     Route: 065

REACTIONS (4)
  - AZOTAEMIA [None]
  - DRUG INTERACTION [None]
  - HEPATOTOXICITY [None]
  - RHABDOMYOLYSIS [None]
